FAERS Safety Report 5314851-2 (Version None)
Quarter: 2007Q2

REPORT INFORMATION
  Report Type: 
  Country: None (occurrence: None)
  Receive Date: 20070502
  Receipt Date: 20070425
  Transmission Date: 20071010
  Serious: Yes (Hospitalization, Disabling)
  Sender: FDA-Public Use
  Company Number: 2006UW25759

PATIENT
  Age: 485 Month
  Sex: Male
  Weight: 112.3 kg

DRUGS (7)
  1. SEROQUEL [Suspect]
     Indication: SCHIZOPHRENIA
     Route: 048
     Dates: start: 20020101, end: 20031001
  2. RISPERDAL [Suspect]
     Route: 065
     Dates: end: 20000101
  3. ZYPREXA [Suspect]
     Route: 065
     Dates: end: 20030101
  4. ABILIFY [Concomitant]
  5. HALDOL [Concomitant]
     Dates: start: 19810101, end: 20000101
  6. TRILAFON [Concomitant]
     Dates: end: 20000101
  7. CRACK COCAINE [Concomitant]

REACTIONS (2)
  - DIABETES MELLITUS [None]
  - HEAD INJURY [None]
